FAERS Safety Report 10016901 (Version 2)
Quarter: 2014Q2

REPORT INFORMATION
  Report Type: Spontaneous
  Country: US (occurrence: US)
  Receive Date: 20140318
  Receipt Date: 20140425
  Transmission Date: 20141212
  Serious: Yes (Hospitalization)
  Sender: FDA-Public Use
  Company Number: US-BIOGENIDEC-2014BI022922

PATIENT
  Age: 32 Year
  Sex: Male

DRUGS (3)
  1. TYSABRI [Suspect]
     Indication: MULTIPLE SCLEROSIS
     Route: 042
     Dates: start: 20110711
  2. IBUPROFEN [Concomitant]
     Route: 048
  3. MAGNESIUM HYDROXIDE [Concomitant]
     Route: 048

REACTIONS (2)
  - Appendicitis [Recovered/Resolved]
  - Diverticular perforation [Recovered/Resolved]
